FAERS Safety Report 4283240-4 (Version None)
Quarter: 2004Q1

REPORT INFORMATION
  Report Type: 
  Country: None (occurrence: None)
  Receive Date: 20040129
  Receipt Date: 20040123
  Transmission Date: 20041129
  Serious: Yes (Death)
  Sender: FDA-Public Use
  Company Number: 200311410BVD

PATIENT
  Age: 83 Year
  Sex: Female
  Weight: 90 kg

DRUGS (12)
  1. AVELOX [Suspect]
     Indication: PNEUMONIA
     Dosage: INTRAVENOUS
     Route: 042
     Dates: start: 20031105
  2. ATOSIL (ISOPROMETHAZINE HYDROCHLORIDE) [Suspect]
  3. DILATREND [Concomitant]
  4. DELIX PLUS [Concomitant]
  5. SPIRONOLACTONE [Concomitant]
  6. EFEROX [Concomitant]
  7. SAB SIMPLEX [Concomitant]
  8. EUTHYROX [Concomitant]
  9. LASIX [Concomitant]
  10. TAVOR [Concomitant]
  11. EUNERPAN [Concomitant]
  12. KALINOR [Concomitant]

REACTIONS (1)
  - SUDDEN DEATH [None]
